FAERS Safety Report 16084614 (Version 1)
Quarter: 2019Q2

REPORT INFORMATION
  Report Type: Spontaneous
  Country: US (occurrence: US)
  Receive Date: 20190317
  Receipt Date: 20190317
  Transmission Date: 20190711
  Serious: Yes (Hospitalization, Other)
  Sender: FDA-Public Use
  Company Number: None

PATIENT
  Age: 38 Year
  Sex: Female
  Weight: 141.75 kg

DRUGS (5)
  1. LABETOLOL [Suspect]
     Active Substance: LABETALOL HYDROCHLORIDE
     Indication: HYPERTENSION
     Dosage: ?          QUANTITY:1 TABLET(S);?
     Route: 048
     Dates: start: 20181109, end: 20190315
  2. PRENATAL [Concomitant]
     Active Substance: VITAMINS
  3. NOVOLOG [Concomitant]
     Active Substance: INSULIN ASPART
  4. METFORMIN [Concomitant]
     Active Substance: METFORMIN HYDROCHLORIDE
  5. LANTUS [Concomitant]
     Active Substance: INSULIN GLARGINE

REACTIONS (5)
  - Aggression [None]
  - Nipple pain [None]
  - Exposure during pregnancy [None]
  - Breast discolouration [None]
  - Vomiting [None]

NARRATIVE: CASE EVENT DATE: 20190206
